FAERS Safety Report 8142378-1 (Version None)
Quarter: 2012Q1

REPORT INFORMATION
  Report Type: 
  Country: None (occurrence: None)
  Receive Date: 20120216
  Receipt Date: 20120210
  Transmission Date: 20120608
  Serious: Yes (Hospitalization, Other)
  Sender: FDA-Public Use
  Company Number: PHEH2006US07279

PATIENT
  Sex: Female

DRUGS (22)
  1. AREDIA [Suspect]
     Indication: METASTASES TO BONE MARROW
     Route: 042
     Dates: start: 20001001
  2. METHOTREXATE [Concomitant]
     Indication: BREAST CANCER METASTATIC
  3. TAMOXIFEN CITRATE [Concomitant]
     Indication: BREAST CANCER METASTATIC
     Dates: start: 20001001
  4. TAXOL [Concomitant]
     Indication: BREAST CANCER METASTATIC
     Dates: start: 20001206
  5. LEXAPRO [Concomitant]
     Indication: DEPRESSION
  6. XELODA [Concomitant]
     Indication: BREAST CANCER METASTATIC
  7. ZOMETA [Suspect]
     Indication: METASTASES TO BONE
     Dosage: 4 MG, QMO
     Route: 042
  8. IRESSA [Concomitant]
  9. VASOTEC [Concomitant]
  10. DILAUDID [Concomitant]
     Indication: PAIN MANAGEMENT
     Route: 058
  11. KLONOPIN [Concomitant]
     Dosage: 6 MG, QD
     Dates: start: 20071214
  12. RADIATION THERAPY [Concomitant]
     Dates: start: 20031008
  13. ABRAXANE [Concomitant]
  14. EPIRUBICIN [Concomitant]
     Indication: BREAST CANCER METASTATIC
  15. GEMZAR [Concomitant]
  16. NAVELBINE [Concomitant]
  17. FASLODEX [Concomitant]
  18. ACTIQ [Concomitant]
  19. CYTOXAN [Concomitant]
     Indication: BREAST CANCER METASTATIC
  20. AVASTIN [Concomitant]
  21. ZYPREXA [Concomitant]
     Dosage: 15 MG, HS
     Route: 048
     Dates: start: 20071213
  22. ZOFRAN [Concomitant]
     Route: 042
     Dates: start: 20071214

REACTIONS (69)
  - OSTEOMYELITIS [None]
  - TENDERNESS [None]
  - FACET JOINT SYNDROME [None]
  - ILEUS [None]
  - SOFT TISSUE DISORDER [None]
  - SEPSIS [None]
  - CONFUSIONAL STATE [None]
  - THYROID NEOPLASM [None]
  - OEDEMA [None]
  - ANXIETY [None]
  - OVARIAN MASS [None]
  - DIARRHOEA [None]
  - SCOLIOSIS [None]
  - LUMBAR SPINAL STENOSIS [None]
  - INTERVERTEBRAL DISC PROTRUSION [None]
  - FACIAL BONES FRACTURE [None]
  - STUPOR [None]
  - PYREXIA [None]
  - URINARY RETENTION [None]
  - BONE PAIN [None]
  - ABDOMINAL MASS [None]
  - COLONIC OBSTRUCTION [None]
  - METASTASES TO BONE [None]
  - PERICARDIAL EFFUSION [None]
  - HYDRONEPHROSIS [None]
  - PNEUMATOSIS INTESTINALIS [None]
  - SMALL INTESTINAL OBSTRUCTION [None]
  - PHLEBOLITH [None]
  - PLEURAL EFFUSION [None]
  - ENCEPHALOMALACIA [None]
  - MENTAL STATUS CHANGES [None]
  - PNEUMONIA [None]
  - HEPATOMEGALY [None]
  - DYSURIA [None]
  - ORAL DISORDER [None]
  - OSTEONECROSIS OF JAW [None]
  - PAIN [None]
  - INSOMNIA [None]
  - OVARIAN CYST [None]
  - RENAL CYST [None]
  - AORTIC CALCIFICATION [None]
  - TRICUSPID VALVE INCOMPETENCE [None]
  - JAW DISORDER [None]
  - EXPOSED BONE IN JAW [None]
  - NAUSEA [None]
  - BURSITIS [None]
  - PERINEURIAL CYST [None]
  - ATELECTASIS [None]
  - DIPLOPIA [None]
  - BACK PAIN [None]
  - GENERAL PHYSICAL HEALTH DETERIORATION [None]
  - PAIN IN JAW [None]
  - INFLAMMATION [None]
  - FIBROCYSTIC BREAST DISEASE [None]
  - OSTEOARTHRITIS [None]
  - SKIN LESION [None]
  - HEPATIC STEATOSIS [None]
  - DYSPNOEA [None]
  - PURULENT DISCHARGE [None]
  - CONSTIPATION [None]
  - DECREASED INTEREST [None]
  - DENTAL CARIES [None]
  - ANAEMIA [None]
  - HEPATIC CYST [None]
  - CALCINOSIS [None]
  - HAEMORRHOIDAL HAEMORRHAGE [None]
  - ERYTHEMA [None]
  - ASCITES [None]
  - UPPER RESPIRATORY TRACT INFECTION [None]
